FAERS Safety Report 22075566 (Version 2)
Quarter: 2024Q4

REPORT INFORMATION
  Report Type: Spontaneous
  Country: RO (occurrence: RO)
  Receive Date: 20230308
  Receipt Date: 20241231
  Transmission Date: 20250115
  Serious: Yes (Other)
  Sender: MYLAN
  Company Number: RO-AMGEN-ROUSP2023023593

PATIENT
  Age: 47 Year
  Sex: Female

DRUGS (11)
  1. OXALIPLATIN [Suspect]
     Active Substance: OXALIPLATIN
     Indication: Colorectal cancer metastatic
     Dosage: UNK
     Route: 042
     Dates: start: 20201123
  2. OXALIPLATIN [Suspect]
     Active Substance: OXALIPLATIN
     Dosage: 85 MILLIGRAM/SQ. METER, INTRAVENOUS INFUSION IN 500ML GLUCOSE 5% OVER 120 MINUTES
     Route: 042
     Dates: start: 202011
  3. FLUOROURACIL [Suspect]
     Active Substance: FLUOROURACIL
     Indication: Colorectal cancer metastatic
     Dosage: UNK
     Route: 042
     Dates: start: 20201123
  4. FLUOROURACIL [Suspect]
     Active Substance: FLUOROURACIL
     Dosage: 400 MILLIGRAM/SQ. METER, INTRAVENOUS BOLUS OVER 10 MINUTES
     Route: 042
     Dates: start: 202011
  5. FLUOROURACIL [Suspect]
     Active Substance: FLUOROURACIL
     Dosage: 2400 MILLIGRAM/SQ. METER, INTRAVENOUS BOLUS OVER 10 MINUTES
     Route: 042
     Dates: start: 202011
  6. LEUCOVORIN [Suspect]
     Active Substance: LEUCOVORIN\LEUCOVORIN CALCIUM
     Indication: Colorectal cancer metastatic
     Dosage: UNK
     Route: 042
     Dates: start: 20201123
  7. LEUCOVORIN [Suspect]
     Active Substance: LEUCOVORIN\LEUCOVORIN CALCIUM
     Dosage: 350 MILLIGRAM, INTRAVENOUS INFUSION IN 250ML GLUCOSE 5% OVER 120 MINUTES
     Route: 042
     Dates: start: 202011
  8. VECTIBIX [Suspect]
     Active Substance: PANITUMUMAB
     Indication: Colorectal cancer metastatic
     Dosage: UNK
     Route: 042
     Dates: start: 20221109
  9. VECTIBIX [Suspect]
     Active Substance: PANITUMUMAB
     Dosage: UNK
     Route: 042
     Dates: start: 20201123
  10. VECTIBIX [Suspect]
     Active Substance: PANITUMUMAB
     Dosage: 6 MILLIGRAM/KILOGRAM, Q2WK, INTRAVENOUS INFUSION IN 100ML SODIUM CHLORIDE 0.9% OVER 60 MINUTES
     Route: 042
     Dates: start: 202011
  11. DOXYCYCLINE [Concomitant]
     Active Substance: DOXYCYCLINE
     Indication: Prophylaxis
     Dosage: 200 MILLIGRAM, QD (100 MG BID)
     Route: 065
     Dates: start: 20201123

REACTIONS (18)
  - Cholecystitis chronic [Unknown]
  - Hepatic neoplasm [Unknown]
  - Lymphoma [Unknown]
  - Ileostomy closure [Unknown]
  - Hepatectomy [Unknown]
  - Colorectal cancer metastatic [Unknown]
  - Adenocarcinoma [Unknown]
  - Metastases to liver [Unknown]
  - Clostridium difficile infection [Unknown]
  - Haematotoxicity [Unknown]
  - Female genital tract fistula [Unknown]
  - Localised oedema [Unknown]
  - Dermatitis acneiform [Unknown]
  - Skin toxicity [Unknown]
  - Gastrointestinal toxicity [Unknown]
  - SARS-CoV-2 test positive [Unknown]
  - COVID-19 [Unknown]
  - Therapy partial responder [Unknown]

NARRATIVE: CASE EVENT DATE: 20210101
